FAERS Safety Report 8196619-5 (Version None)
Quarter: 2012Q1

REPORT INFORMATION
  Report Type: 
  Country: None (occurrence: None)
  Receive Date: 20120307
  Receipt Date: 20120227
  Transmission Date: 20120608
  Serious: Yes (Other)
  Sender: FDA-Public Use
  Company Number: 1208611

PATIENT

DRUGS (1)
  1. PRECEDEX [Suspect]
     Indication: CORONARY ARTERY BYPASS
     Dosage: UNKNOWN

REACTIONS (1)
  - COUGH [None]
